FAERS Safety Report 9502935 (Version 4)
Quarter: 2013Q3

REPORT INFORMATION
  Report Type: Report from Study
  Country: BR (occurrence: BR)
  Receive Date: 20130906
  Receipt Date: 20130913
  Transmission Date: 20140515
  Serious: Yes (Other)
  Sender: FDA-Public Use
  Company Number: PHHY2013BR097326

PATIENT
  Sex: Female

DRUGS (5)
  1. GALVUS MET [Suspect]
     Indication: DIABETES MELLITUS
     Dosage: 1 DF (850 MG METF/50 MG VILD) BID (1 DF AT MORNING AND 1 DF AT NIGHT, DAILY)
     Dates: end: 201307
  2. DIOVAN HCT [Suspect]
     Indication: BLOOD PRESSURE ABNORMAL
     Dosage: 1 DF (160 MG VALS/12.5 MG HYDR), IN THE MORNING
     Route: 048
     Dates: end: 201308
  3. DIOVAN HCT [Suspect]
     Dosage: 1 DF (320MG VALS/12.5MG HCT), UNK
  4. GLIMEPIRIDE [Suspect]
     Dosage: UNK UKN, UNK
  5. METFORMIN [Suspect]
     Dosage: 2 MG, UNK

REACTIONS (5)
  - Blood glucose increased [Recovering/Resolving]
  - Blood cholesterol abnormal [Recovering/Resolving]
  - Osteoarthritis [Recovering/Resolving]
  - Rheumatic disorder [Recovering/Resolving]
  - Blood pressure increased [Recovering/Resolving]
